FAERS Safety Report 10376522 (Version 1)
Quarter: 2014Q3

REPORT INFORMATION
  Report Type: Report from Study
  Country: GB (occurrence: GB)
  Receive Date: 20140811
  Receipt Date: 20140811
  Transmission Date: 20150326
  Serious: Yes (Other)
  Sender: FDA-Public Use
  Company Number: GB-BAXTER-2014BAX046867

PATIENT

DRUGS (1)
  1. TISSEEL LYO [Suspect]
     Active Substance: FIBRINOGEN HUMAN\THROMBIN HUMAN
     Indication: MENINGEAL REPAIR
     Route: 065

REACTIONS (2)
  - Post lumbar puncture syndrome [Unknown]
  - Cerebrospinal fluid leakage [Unknown]
